FAERS Safety Report 5823684-X (Version None)
Quarter: 2008Q3

REPORT INFORMATION
  Report Type: 
  Country: None (occurrence: None)
  Receive Date: 20080725
  Receipt Date: 20080714
  Transmission Date: 20090109
  Serious: Yes (Other)
  Sender: FDA-Public Use
  Company Number: US-PFIZER INC-2008042307

PATIENT
  Sex: Male
  Weight: 67.6 kg

DRUGS (5)
  1. LYRICA [Suspect]
     Indication: CONVULSION
     Route: 048
     Dates: start: 20051019, end: 20060101
  2. DILANTIN SUSPENSION [Suspect]
  3. ZONEGRAN [Concomitant]
  4. KEPPRA [Concomitant]
  5. LAMICTAL [Concomitant]

REACTIONS (8)
  - AGGRESSION [None]
  - AGITATION [None]
  - ANOREXIA [None]
  - DRUG HYPERSENSITIVITY [None]
  - FEAR [None]
  - INSOMNIA [None]
  - PARANOIA [None]
  - PERSECUTORY DELUSION [None]
